FAERS Safety Report 6105687-3 (Version None)
Quarter: 2009Q1

REPORT INFORMATION
  Report Type: 
  Country: None (occurrence: None)
  Receive Date: 20090304
  Receipt Date: 20090304
  Transmission Date: 20090719
  Serious: Yes (Death)
  Sender: FDA-Public Use
  Company Number: None

PATIENT
  Age: 53 Year
  Sex: Female

DRUGS (2)
  1. XELODA [Suspect]
     Dosage: 1000 MG/M2 BID PO
     Route: 048
     Dates: start: 20080311, end: 20080403
  2. SUTENT [Suspect]
     Dosage: 12.5 MG 3 X DAILY PO
     Route: 048
     Dates: start: 20080424, end: 20080525

REACTIONS (2)
  - DISEASE PROGRESSION [None]
  - REFUSAL OF TREATMENT BY PATIENT [None]
